FAERS Safety Report 4834503-2 (Version None)
Quarter: 2005Q4

REPORT INFORMATION
  Report Type: 
  Country: None (occurrence: None)
  Receive Date: 20051122
  Receipt Date: 20050111
  Transmission Date: 20060501
  Serious: No
  Sender: FDA-Public Use
  Company Number: US-BRISTOL-MYERS SQUIBB COMPANY-12821104

PATIENT
  Age: 49 Year
  Sex: Male
  Weight: 83 kg

DRUGS (15)
  1. PRAVACHOL [Suspect]
     Indication: BLOOD CHOLESTEROL INCREASED
     Route: 048
  2. EFAVIRENZ [Concomitant]
  3. LOPINAVIR [Concomitant]
  4. CAPTOPRIL [Concomitant]
  5. ASPIRIN [Concomitant]
  6. BUPROPION HCL [Concomitant]
  7. PROZAC [Concomitant]
  8. ZERIT [Concomitant]
  9. ATIVAN [Concomitant]
  10. METOPROLOL [Concomitant]
  11. ISOSORBIDE MONONITRATE [Concomitant]
  12. NITROGLYCERIN TABS [Concomitant]
  13. NIACIN [Concomitant]
  14. GEMFIBROZIL [Concomitant]
  15. OMEPRAZOLE [Concomitant]

REACTIONS (1)
  - FLATULENCE [None]
